FAERS Safety Report 25383821 (Version 1)
Quarter: 2025Q2

REPORT INFORMATION
  Report Type: Report from Study
  Country: US (occurrence: US)
  Receive Date: 20250602
  Receipt Date: 20250602
  Transmission Date: 20250717
  Serious: Yes (Death, Other)
  Sender: ACADIA PHARMACEUTICALS
  Company Number: US-ACADIA PHARMACEUTICALS INC.-ACA-2025-PIM-006399

PATIENT
  Age: 75 Year
  Sex: Male

DRUGS (22)
  1. NUPLAZID [Suspect]
     Active Substance: PIMAVANSERIN TARTRATE
     Indication: Parkinson^s disease
     Dosage: 34 MILLIGRAM, QD
     Route: 048
  2. ELIQUIS [Concomitant]
     Active Substance: APIXABAN
  3. OMEPRAZOLE [Concomitant]
     Active Substance: OMEPRAZOLE
  4. DEPAKOTE [Concomitant]
     Active Substance: DIVALPROEX SODIUM
  5. SOTALOL [Concomitant]
     Active Substance: SOTALOL
  6. ATORVASTATIN [Concomitant]
     Active Substance: ATORVASTATIN
  7. MIDODRINE [Concomitant]
     Active Substance: MIDODRINE
  8. OZEMPIC [Concomitant]
     Active Substance: SEMAGLUTIDE
  9. FARXIGA [Concomitant]
     Active Substance: DAPAGLIFLOZIN PROPANEDIOL
  10. LEXAPRO [Concomitant]
     Active Substance: ESCITALOPRAM OXALATE
  11. MEMANTINE [Concomitant]
     Active Substance: MEMANTINE
  12. PREDNISONE [Concomitant]
     Active Substance: PREDNISONE
  13. SPIRONOLACTONE [Concomitant]
     Active Substance: SPIRONOLACTONE
  14. CEFUROXIME [Concomitant]
     Active Substance: CEFUROXIME
  15. RANOLAZINE [Concomitant]
     Active Substance: RANOLAZINE
  16. VITAMIN B12 [Concomitant]
     Active Substance: CYANOCOBALAMIN
  17. LEVOTHYROXINE [Concomitant]
     Active Substance: LEVOTHYROXINE
  18. CLONAZEPAM [Concomitant]
     Active Substance: CLONAZEPAM
  19. CHOLECALCIFEROL [Concomitant]
     Active Substance: CHOLECALCIFEROL
  20. ARICEPT [Concomitant]
     Active Substance: DONEPEZIL HYDROCHLORIDE
  21. RYTARY [Concomitant]
     Active Substance: CARBIDOPA\LEVODOPA
  22. SINGULAIR [Concomitant]
     Active Substance: MONTELUKAST SODIUM

REACTIONS (1)
  - Death [Fatal]

NARRATIVE: CASE EVENT DATE: 20250514
